FAERS Safety Report 11536428 (Version 1)
Quarter: 2015Q3

REPORT INFORMATION
  Report Type: Spontaneous
  Country: CN (occurrence: CN)
  Receive Date: 20150922
  Receipt Date: 20150922
  Transmission Date: 20151125
  Serious: Yes (Other)
  Sender: FDA-Public Use
  Company Number: CN-PFIZER INC-2015311266

PATIENT

DRUGS (3)
  1. MEPEM [Suspect]
     Active Substance: MEROPENEM
  2. ZYVOX [Suspect]
     Active Substance: LINEZOLID
  3. VFEND [Suspect]
     Active Substance: VORICONAZOLE

REACTIONS (3)
  - Unresponsive to stimuli [Unknown]
  - Memory impairment [Unknown]
  - Dyskinesia [Unknown]
